FAERS Safety Report 6572239-0 (Version None)
Quarter: 2010Q1

REPORT INFORMATION
  Report Type: 
  Country: None (occurrence: None)
  Receive Date: 20100205
  Receipt Date: 20100127
  Transmission Date: 20100710
  Serious: Yes (Other)
  Sender: FDA-Public Use
  Company Number: PHHY2010CA04581

PATIENT

DRUGS (1)
  1. ALISKIREN ALI+ [Suspect]
     Dosage: 300 MG

REACTIONS (1)
  - URINE ALBUMIN/CREATININE RATIO INCREASED [None]
